FAERS Safety Report 18105008 (Version 1)
Quarter: 2020Q3

REPORT INFORMATION
  Report Type: Spontaneous
  Country: DE (occurrence: DE)
  Receive Date: 20200803
  Receipt Date: 20200803
  Transmission Date: 20201103
  Serious: Yes (Other)
  Sender: FDA-Public Use
  Company Number: DE-ELI_LILLY_AND_COMPANY-DE202007010021

PATIENT
  Age: 72 Year
  Sex: Female

DRUGS (4)
  1. FORSTEO 250UG/ML [Suspect]
     Active Substance: TERIPARATIDE
     Indication: OSTEOPOROSIS
     Dosage: UNK
     Dates: start: 20200312, end: 20200603
  2. VITAMIN D NOS [Concomitant]
     Active Substance: VITAMIN D NOS
     Indication: PRODUCT USED FOR UNKNOWN INDICATION
     Dosage: UNK
  3. VIGANTOL OIL [Concomitant]
     Indication: PRODUCT USED FOR UNKNOWN INDICATION
  4. L?THYROXIN [LEVOTHYROXINE SODIUM] [Concomitant]
     Active Substance: LEVOTHYROXINE SODIUM
     Indication: PRODUCT USED FOR UNKNOWN INDICATION
     Dosage: UNK

REACTIONS (6)
  - Insomnia [Unknown]
  - Nausea [Unknown]
  - Asthenia [Unknown]
  - Loss of consciousness [Unknown]
  - Abdominal pain upper [Unknown]
  - Pollakiuria [Unknown]

NARRATIVE: CASE EVENT DATE: 20200314
